FAERS Safety Report 11755512 (Version 2)
Quarter: 2016Q1

REPORT INFORMATION
  Report Type: Spontaneous
  Country: US (occurrence: US)
  Receive Date: 20151119
  Receipt Date: 20160212
  Transmission Date: 20160525
  Serious: Yes (Disabling, Other)
  Sender: FDA-Public Use
  Company Number: US-REGENERON PHARMACEUTICALS, INC.-2015-13778

PATIENT

DRUGS (4)
  1. PLAVIX [Concomitant]
     Active Substance: CLOPIDOGREL BISULFATE
  2. WARFARIN [Concomitant]
     Active Substance: WARFARIN
  3. EYLEA [Suspect]
     Active Substance: AFLIBERCEPT
     Indication: NEOVASCULAR AGE-RELATED MACULAR DEGENERATION
     Dosage: 2 MG MILLIGRAM(S), SINGLE, OS
     Route: 031
     Dates: start: 20151027, end: 20151027
  4. AMLODIPINE [Concomitant]
     Active Substance: AMLODIPINE BESYLATE

REACTIONS (4)
  - Enterococcal infection [Unknown]
  - Blindness unilateral [Unknown]
  - Eye infection bacterial [Unknown]
  - Vitrectomy [Unknown]

NARRATIVE: CASE EVENT DATE: 20151027
